FAERS Safety Report 8402780-7 (Version None)
Quarter: 2012Q2

REPORT INFORMATION
  Report Type: 
  Country: None (occurrence: None)
  Receive Date: 20120323
  Receipt Date: 20110119
  Transmission Date: 20120825
  Serious: Yes (Hospitalization)
  Sender: FDA-Public Use
  Company Number: 163-21880-10103079

PATIENT
  Age: 56 Year
  Sex: Female

DRUGS (7)
  1. REVLIMID [Suspect]
     Indication: MULTIPLE MYELOMA
     Dosage: 25 MG, DAILY, PO
     Route: 048
     Dates: start: 20080201, end: 20101006
  2. REVLIMID [Suspect]
     Indication: MULTIPLE MYELOMA
     Dosage: 25 MG, DAILY, PO
     Route: 048
     Dates: start: 20100101
  3. REVLIMID [Suspect]
  4. AMBIEN [Concomitant]
  5. ASPIRIN [Concomitant]
  6. ZOMETA [Concomitant]
  7. VAGIFEM [Concomitant]

REACTIONS (2)
  - DIARRHOEA [None]
  - LEUKOPENIA [None]
